FAERS Safety Report 10257769 (Version 1)
Quarter: 2014Q2

REPORT INFORMATION
  Report Type: Other
  Country: US (occurrence: US)
  Receive Date: 20140625
  Receipt Date: 20140625
  Transmission Date: 20141212
  Serious: No
  Sender: FDA-Public Use
  Company Number: US-LUPIN PHARMACEUTICALS INC.-2014-00936

PATIENT
  Sex: Female

DRUGS (2)
  1. TRAMADOL [Suspect]
     Indication: POLIOMYELITIS
     Route: 065
  2. TRAMADOL [Suspect]
     Route: 065
     Dates: start: 20140330

REACTIONS (3)
  - Pruritus generalised [Unknown]
  - Expired product administered [Unknown]
  - Off label use [Unknown]
